FAERS Safety Report 23788063 (Version 1)
Quarter: 2024Q2

REPORT INFORMATION
  Report Type: Spontaneous
  Country: US (occurrence: US)
  Receive Date: 20240426
  Receipt Date: 20240426
  Transmission Date: 20240716
  Serious: No
  Sender: FDA-Public Use
  Company Number: US-TARO PHARMACEUTICALS USA INC.-2024TAR00108

PATIENT

DRUGS (2)
  1. FLUOROURACIL [Suspect]
     Active Substance: FLUOROURACIL
     Indication: Precancerous skin lesion
     Dosage: UNK, BID, APPLIED THE CREAM EVERYWHERE ON HER FACE EXCEPT AROUND HER EYES AND MOUTH
     Route: 061
     Dates: start: 20240110, end: 20240120
  2. FLUOROURACIL [Suspect]
     Active Substance: FLUOROURACIL
     Indication: Sunburn

REACTIONS (3)
  - Lip erythema [Not Recovered/Not Resolved]
  - Lip dry [Not Recovered/Not Resolved]
  - Oral discomfort [Not Recovered/Not Resolved]
